FAERS Safety Report 6889411-2 (Version None)
Quarter: 2010Q3

REPORT INFORMATION
  Report Type: 
  Country: None (occurrence: None)
  Receive Date: 20100730
  Receipt Date: 20080219
  Transmission Date: 20110219
  Serious: No
  Sender: FDA-Public Use
  Company Number: US-PFIZER INC-2005075503

PATIENT
  Age: 70 Year
  Sex: Female
  Weight: 52.62 kg

DRUGS (2)
  1. LIPITOR [Suspect]
     Indication: BLOOD CHOLESTEROL INCREASED
     Route: 048
     Dates: start: 20050101
  2. AMIODARONE HCL [Concomitant]
     Route: 065

REACTIONS (1)
  - HEADACHE [None]
